FAERS Safety Report 18227430 (Version 1)
Quarter: 2020Q3

REPORT INFORMATION
  Report Type: Spontaneous
  Country: IT (occurrence: IT)
  Receive Date: 20200903
  Receipt Date: 20200903
  Transmission Date: 20201103
  Serious: Yes (Hospitalization)
  Sender: FDA-Public Use
  Company Number: IT-ROCHE-2670517

PATIENT
  Age: 71 Year
  Sex: Male

DRUGS (1)
  1. RIVOTRIL [Suspect]
     Active Substance: CLONAZEPAM
     Indication: PRODUCT USED FOR UNKNOWN INDICATION
     Dosage: FORM STRENGTH 2.5 MG/ML, SOLUTION
     Route: 048
     Dates: start: 20200824, end: 20200824

REACTIONS (3)
  - Depressed level of consciousness [Unknown]
  - Medication error [Unknown]
  - Sopor [Unknown]

NARRATIVE: CASE EVENT DATE: 20200824
